FAERS Safety Report 19086407 (Version 1)
Quarter: 2021Q2

REPORT INFORMATION
  Report Type: Other
  Country: GB (occurrence: GB)
  Receive Date: 20210402
  Receipt Date: 20210402
  Transmission Date: 20210717
  Serious: Yes (Hospitalization, Other)
  Sender: FDA-Public Use
  Company Number: GB-FDC LIMITED-2108834

PATIENT
  Sex: Male

DRUGS (9)
  1. CLARITHROMYCIN. [Suspect]
     Active Substance: CLARITHROMYCIN
     Route: 048
  2. TIGECYCLINE. [Suspect]
     Active Substance: TIGECYCLINE
     Route: 042
  3. CEFTAZIDIME. [Suspect]
     Active Substance: CEFTAZIDIME
     Route: 048
  4. AZTREONAM. [Suspect]
     Active Substance: AZTREONAM
     Route: 048
  5. AMIKACIN SULFATE. [Suspect]
     Active Substance: AMIKACIN SULFATE
     Route: 048
  6. IMIPENEM [Suspect]
     Active Substance: IMIPENEM
     Route: 048
  7. CIPROFLOXACIN. [Suspect]
     Active Substance: CIPROFLOXACIN
     Indication: MYCOBACTERIUM ABSCESSUS INFECTION
     Route: 048
  8. TOBRAMYCIN. [Suspect]
     Active Substance: TOBRAMYCIN
     Route: 048
  9. MEROPENEM. [Suspect]
     Active Substance: MEROPENEM
     Route: 042

REACTIONS (4)
  - Abdominal pain [Unknown]
  - Deafness [Unknown]
  - Nausea [Unknown]
  - Diarrhoea [Unknown]
